FAERS Safety Report 5627396-7 (Version None)
Quarter: 2008Q1

REPORT INFORMATION
  Report Type: 
  Country: None (occurrence: None)
  Receive Date: 20080215
  Receipt Date: 20080207
  Transmission Date: 20080703
  Serious: Yes (Hospitalization, Other)
  Sender: FDA-Public Use
  Company Number: GB-JNJFOC-20080201911

PATIENT
  Sex: Male
  Weight: 95 kg

DRUGS (6)
  1. REMICADE [Suspect]
     Indication: RHEUMATOID ARTHRITIS
     Route: 042
  2. PREDNISOLONE [Concomitant]
  3. IBUPROFEN [Concomitant]
  4. LISINOPRIL [Concomitant]
  5. PARACETAMOL [Concomitant]
  6. SULFASALAZINE [Concomitant]

REACTIONS (1)
  - PHARYNGEAL POUCH [None]
